FAERS Safety Report 7203313-3 (Version None)
Quarter: 2010Q4

REPORT INFORMATION
  Report Type: 
  Country: None (occurrence: None)
  Receive Date: 20101230
  Receipt Date: 20101220
  Transmission Date: 20110411
  Serious: No
  Sender: FDA-Public Use
  Company Number: US-BIOGENIDEC-2010BI044401

PATIENT
  Age: 39 Year
  Sex: Male

DRUGS (2)
  1. AVONEX [Suspect]
     Indication: MULTIPLE SCLEROSIS
     Route: 030
     Dates: start: 20101211
  2. ATIVAN [Concomitant]
     Indication: PANIC ATTACK
     Route: 048
     Dates: start: 20100901

REACTIONS (4)
  - DIZZINESS [None]
  - FEELING JITTERY [None]
  - HEART RATE INCREASED [None]
  - INFLUENZA LIKE ILLNESS [None]
